FAERS Safety Report 6496510-6 (Version None)
Quarter: 2009Q4

REPORT INFORMATION
  Report Type: 
  Country: None (occurrence: None)
  Receive Date: 20091210
  Receipt Date: 20091202
  Transmission Date: 20100525
  Serious: Yes (Life-Threatening, Hospitalization, Other)
  Sender: FDA-Public Use
  Company Number: ADR52832009

PATIENT
  Age: 25 Year
  Sex: Male

DRUGS (10)
  1. CIPROFLOXACIN [Suspect]
     Indication: CHEST DISCOMFORT
  2. IBUPROFEN [Concomitant]
  3. CLARITHROMYCIN [Concomitant]
  4. COMBIVIR [Concomitant]
  5. CO-TRIMOXAZOLE [Concomitant]
  6. EFAVIRENZ [Concomitant]
  7. LAMIVUDINE [Concomitant]
  8. LOPERAMIDE HYDROCHLORIDE [Concomitant]
  9. NEVIRAPINE [Concomitant]
  10. TENOFOVIR DISOPROXIL FUMARATE [Concomitant]

REACTIONS (8)
  - AGITATION [None]
  - CONFUSIONAL STATE [None]
  - COUGH [None]
  - PAIN IN EXTREMITY [None]
  - PYREXIA [None]
  - SEPSIS [None]
  - VANISHING BILE DUCT SYNDROME [None]
  - VOMITING [None]
